FAERS Safety Report 20577951 (Version 1)
Quarter: 2022Q1

REPORT INFORMATION
  Report Type: Spontaneous
  Country: US (occurrence: None)
  Receive Date: 20220309
  Receipt Date: 20220309
  Transmission Date: 20220423
  Serious: Yes (Other)
  Sender: FDA-Public Use
  Company Number: None

PATIENT
  Age: 31 Year
  Sex: Female
  Weight: 66.6 kg

DRUGS (5)
  1. COLCHICINE [Suspect]
     Active Substance: COLCHICINE
     Indication: Aphthous ulcer
     Dosage: FREQUENCY : TWICE A DAY;?
     Route: 048
     Dates: start: 20211208, end: 20211210
  2. OTEZLA [Concomitant]
     Active Substance: APREMILAST
  3. mili birth control SID [Concomitant]
  4. prenatal vitamin SID [Concomitant]
  5. claritin SID [Concomitant]

REACTIONS (1)
  - Drug hypersensitivity [None]

NARRATIVE: CASE EVENT DATE: 20211208
